FAERS Safety Report 5810880-0 (Version None)
Quarter: 2008Q3

REPORT INFORMATION
  Report Type: 
  Country: None (occurrence: None)
  Receive Date: 20080716
  Receipt Date: 20080624
  Transmission Date: 20090109
  Serious: Yes (Other)
  Sender: FDA-Public Use
  Company Number: PHBS2008CA05006

PATIENT

DRUGS (3)
  1. METHYLPHENIDATE HCL [Suspect]
     Indication: APATHY
     Dosage: 5 MG, BID
     Route: 048
  2. METHYLPHENIDATE HCL [Suspect]
     Dosage: 10 MG, BID
     Route: 048
  3. CHOLINESTERASE INHIBITOR [Concomitant]
     Indication: COGNITIVE DISORDER
     Dosage: UNK
     Route: 065

REACTIONS (4)
  - AGGRESSION [None]
  - AGITATION [None]
  - DELUSION [None]
  - FLUSHING [None]
